FAERS Safety Report 17785077 (Version 6)
Quarter: 2023Q4

REPORT INFORMATION
  Report Type: Spontaneous
  Country: US (occurrence: US)
  Receive Date: 20200513
  Receipt Date: 20231103
  Transmission Date: 20240109
  Serious: Yes (Hospitalization, Other)
  Sender: FDA-Public Use
  Company Number: US-GILEAD-2020-0466520

PATIENT
  Age: 52 Year
  Sex: Male
  Weight: 81.633 kg

DRUGS (30)
  1. VIREAD [Suspect]
     Active Substance: TENOFOVIR DISOPROXIL FUMARATE
     Indication: HIV infection
     Dosage: UNK
     Route: 048
     Dates: start: 2013
  2. ATRIPLA [Suspect]
     Active Substance: EFAVIRENZ\EMTRICITABINE\TENOFOVIR DISOPROXIL FUMARATE
     Indication: HIV infection
     Dosage: UNK
     Route: 065
     Dates: start: 2006, end: 2008
  3. TRUVADA [Suspect]
     Active Substance: EMTRICITABINE\TENOFOVIR DISOPROXIL FUMARATE
     Indication: HIV infection
     Dosage: UNK
     Route: 048
     Dates: start: 200509, end: 202002
  4. TRUVADA [Suspect]
     Active Substance: EMTRICITABINE\TENOFOVIR DISOPROXIL FUMARATE
     Dosage: UNK
     Route: 048
     Dates: start: 2013
  5. TRUVADA [Suspect]
     Active Substance: EMTRICITABINE\TENOFOVIR DISOPROXIL FUMARATE
     Dosage: UNK
     Route: 048
     Dates: start: 2014, end: 2020
  6. TRUVADA [Suspect]
     Active Substance: EMTRICITABINE\TENOFOVIR DISOPROXIL FUMARATE
     Dosage: UNK
     Route: 065
     Dates: start: 2008, end: 20200221
  7. TRUVADA [Suspect]
     Active Substance: EMTRICITABINE\TENOFOVIR DISOPROXIL FUMARATE
     Dosage: UNK
     Route: 065
     Dates: start: 2010, end: 20200221
  8. BIKTARVY [Concomitant]
     Active Substance: BICTEGRAVIR SODIUM\EMTRICITABINE\TENOFOVIR ALAFENAMIDE FUMARATE
  9. PREDNISOLONE [Concomitant]
     Active Substance: PREDNISOLONE
  10. TYLENOL [Concomitant]
     Active Substance: ACETAMINOPHEN
  11. AMOXICILLIN [Concomitant]
     Active Substance: AMOXICILLIN
  12. ASPIRIN [Concomitant]
     Active Substance: ASPIRIN
  13. BACTRIM [Concomitant]
     Active Substance: SULFAMETHOXAZOLE\TRIMETHOPRIM
  14. CRESTOR [Concomitant]
     Active Substance: ROSUVASTATIN CALCIUM
  15. PEPCID [Concomitant]
     Active Substance: FAMOTIDINE
  16. GANCICLOVIR [Concomitant]
     Active Substance: GANCICLOVIR
  17. PRAVASTATIN [Concomitant]
     Active Substance: PRAVASTATIN
  18. TACROLIMUS [Concomitant]
     Active Substance: TACROLIMUS
  19. EPIVIR [Concomitant]
     Active Substance: LAMIVUDINE
  20. NORVIR [Concomitant]
     Active Substance: RITONAVIR
  21. PREZISTA [Concomitant]
     Active Substance: DARUNAVIR ETHANOLATE
  22. TIVICAY [Concomitant]
     Active Substance: DOLUTEGRAVIR SODIUM
  23. ALPRAZOLAM [Concomitant]
     Active Substance: ALPRAZOLAM
  24. CARVEDILOL [Concomitant]
     Active Substance: CARVEDILOL
  25. HYDRALAZINE [Concomitant]
     Active Substance: HYDRALAZINE HYDROCHLORIDE
  26. METOPROLOL [Concomitant]
     Active Substance: METOPROLOL
  27. FAMOTIDINE [Concomitant]
     Active Substance: FAMOTIDINE
  28. VALGANCICLOVIR [Concomitant]
     Active Substance: VALGANCICLOVIR
  29. INSULIN NOS [Concomitant]
     Active Substance: INSULIN NOS
  30. WARFARIN [Concomitant]
     Active Substance: WARFARIN

REACTIONS (16)
  - Acute kidney injury [Unknown]
  - Chronic kidney disease [Not Recovered/Not Resolved]
  - Osteoporosis [Not Recovered/Not Resolved]
  - Osteonecrosis [Unknown]
  - End stage renal disease [Recovered/Resolved]
  - Renal transplant [Recovered/Resolved]
  - Renal tubular injury [Recovered/Resolved]
  - Renal failure [Unknown]
  - Acute kidney injury [Recovered/Resolved]
  - Bone density decreased [Unknown]
  - Bone loss [Unknown]
  - Pain [Unknown]
  - Emotional distress [Unknown]
  - Anxiety [Unknown]
  - Anhedonia [Unknown]
  - Exercise tolerance decreased [Unknown]

NARRATIVE: CASE EVENT DATE: 20140801
